FAERS Safety Report 18838448 (Version 1)
Quarter: 2021Q1

REPORT INFORMATION
  Report Type: Spontaneous
  Country: US (occurrence: US)
  Receive Date: 20210203
  Receipt Date: 20210203
  Transmission Date: 20210419
  Serious: No
  Sender: FDA-Public Use
  Company Number: US-ALLERGAN-2048418US

PATIENT
  Age: 29 Year
  Sex: Female

DRUGS (4)
  1. ACIFIX [Concomitant]
     Indication: GASTROOESOPHAGEAL REFLUX DISEASE
  2. BOTOX [Suspect]
     Active Substance: ONABOTULINUMTOXINA
     Indication: TEMPOROMANDIBULAR JOINT SYNDROME
     Dosage: 60 UNITS, SINGLE
     Dates: start: 20201030, end: 20201030
  3. BOTOX [Suspect]
     Active Substance: ONABOTULINUMTOXINA
     Indication: MIGRAINE
     Dosage: 40 UNITS, SINGLE
     Dates: start: 20201030, end: 20201030
  4. ATIVAN [Concomitant]
     Active Substance: LORAZEPAM
     Indication: TEMPOROMANDIBULAR JOINT SYNDROME
     Route: 048

REACTIONS (11)
  - Facial asymmetry [Not Recovered/Not Resolved]
  - Headache [Not Recovered/Not Resolved]
  - Dyskinesia [Not Recovered/Not Resolved]
  - Muscle tightness [Not Recovered/Not Resolved]
  - Injection site pain [Not Recovered/Not Resolved]
  - Swelling face [Not Recovered/Not Resolved]
  - Drug ineffective [Unknown]
  - Off label use [Unknown]
  - Injection site mass [Not Recovered/Not Resolved]
  - Condition aggravated [Not Recovered/Not Resolved]
  - Facial nerve disorder [Not Recovered/Not Resolved]

NARRATIVE: CASE EVENT DATE: 20201108
